FAERS Safety Report 12317730 (Version 2)
Quarter: 2016Q2

REPORT INFORMATION
  Report Type: Report from Study
  Country: US (occurrence: US)
  Receive Date: 20160429
  Receipt Date: 20160510
  Transmission Date: 20160815
  Serious: Yes (Death)
  Sender: FDA-Public Use
  Company Number: US-BEH-2016062003

PATIENT
  Age: 81 Year
  Sex: Female
  Weight: 64 kg

DRUGS (3)
  1. KCENTRA [Suspect]
     Active Substance: COAGULATION FACTOR IX HUMAN\COAGULATION FACTOR VII HUMAN\COAGULATION FACTOR X HUMAN\PROTEIN C\PROTEIN S HUMAN\PROTHROMBIN
     Indication: CEREBRAL HAEMORRHAGE
     Dates: start: 20150117
  2. KCENTRA [Suspect]
     Active Substance: COAGULATION FACTOR IX HUMAN\COAGULATION FACTOR VII HUMAN\COAGULATION FACTOR X HUMAN\PROTEIN C\PROTEIN S HUMAN\PROTHROMBIN
     Indication: CEREBRAL HAEMORRHAGE
     Dates: start: 20150117
  3. VITAMIN K [Suspect]
     Active Substance: PHYTONADIONE
     Route: 042
     Dates: start: 20150117, end: 20150117

REACTIONS (3)
  - Pulseless electrical activity [Fatal]
  - Cardiac arrest [Fatal]
  - Pulmonary embolism [Fatal]
